FAERS Safety Report 12928810 (Version 1)
Quarter: 2016Q4

REPORT INFORMATION
  Report Type: Spontaneous
  Country: US (occurrence: US)
  Receive Date: 20161110
  Receipt Date: 20161110
  Transmission Date: 20170207
  Serious: No
  Sender: FDA-Public Use
  Company Number: US-TEVA-683960USA

PATIENT
  Sex: Male

DRUGS (2)
  1. CELECOXIB. [Suspect]
     Active Substance: CELECOXIB
     Indication: TENDONITIS
  2. CELECOXIB. [Suspect]
     Active Substance: CELECOXIB
     Indication: OSTEOARTHRITIS
     Dosage: 400 MILLIGRAM DAILY;
     Route: 065
     Dates: start: 20160701

REACTIONS (4)
  - Drug ineffective [Recovered/Resolved]
  - Tendonitis [Unknown]
  - Product substitution issue [Recovered/Resolved]
  - Arthralgia [Recovered/Resolved]

NARRATIVE: CASE EVENT DATE: 201607
